FAERS Safety Report 12418766 (Version 1)
Quarter: 2016Q2

REPORT INFORMATION
  Report Type: Report from Study
  Country: BR (occurrence: BR)
  Receive Date: 20160531
  Receipt Date: 20160531
  Transmission Date: 20160815
  Serious: Yes (Other)
  Sender: FDA-Public Use
  Company Number: BR-ROCHE-1765285

PATIENT
  Age: 66 Year
  Sex: Female
  Weight: 44 kg

DRUGS (1)
  1. XOLAIR [Suspect]
     Active Substance: OMALIZUMAB
     Indication: ASTHMA
     Route: 058
     Dates: start: 20150915, end: 201602

REACTIONS (7)
  - Memory impairment [Unknown]
  - Granulomatosis with polyangiitis [Unknown]
  - Dyspnoea [Not Recovered/Not Resolved]
  - Aphasia [Unknown]
  - Aversion [Not Recovered/Not Resolved]
  - Drug ineffective [Unknown]
  - Fatigue [Not Recovered/Not Resolved]

NARRATIVE: CASE EVENT DATE: 201602
